FAERS Safety Report 21041633 (Version 2)
Quarter: 2022Q3

REPORT INFORMATION
  Report Type: Spontaneous
  Country: US (occurrence: None)
  Receive Date: 20220705
  Receipt Date: 20220726
  Transmission Date: 20221027
  Serious: Yes (Other)
  Sender: FDA-Public Use
  Company Number: US-ROCHE-3127323

PATIENT
  Sex: Female

DRUGS (1)
  1. OCREVUS [Suspect]
     Active Substance: OCRELIZUMAB
     Indication: Relapsing-remitting multiple sclerosis
     Dosage: 300 MG ON 12/3 AND 12/17.
     Route: 065
     Dates: start: 202112

REACTIONS (5)
  - Herpes zoster [Unknown]
  - Immunodeficiency [Unknown]
  - Upper respiratory tract infection [Unknown]
  - Cystitis [Unknown]
  - Ear infection [Unknown]
